FAERS Safety Report 10616400 (Version 1)
Quarter: 2014Q4

REPORT INFORMATION
  Report Type: Spontaneous
  Country: US (occurrence: US)
  Receive Date: 20141201
  Receipt Date: 20141201
  Transmission Date: 20150529
  Serious: Yes (Other)
  Sender: FDA-Public Use
  Company Number: US-SA-2014SA163684

PATIENT
  Age: 19 Year
  Weight: 79.37 kg

DRUGS (2)
  1. NOVOLOG [Suspect]
     Active Substance: INSULIN ASPART
     Dosage: DOSE:15 UNIT(S)
     Route: 065
  2. LANTUS [Suspect]
     Active Substance: INSULIN GLARGINE
     Dosage: DOSE:8 UNIT(S)
     Route: 065

REACTIONS (4)
  - Blood glucose fluctuation [Unknown]
  - Anxiety [Unknown]
  - Optic neuropathy [Unknown]
  - Depressed mood [Unknown]
